FAERS Safety Report 6847933-4 (Version None)
Quarter: 2010Q3

REPORT INFORMATION
  Report Type: 
  Country: None (occurrence: None)
  Receive Date: 20100716
  Receipt Date: 20100712
  Transmission Date: 20110219
  Serious: Yes (Hospitalization)
  Sender: FDA-Public Use
  Company Number: NO-SANOFI-AVENTIS-2010SA040871

PATIENT
  Age: 69 Year
  Sex: Male

DRUGS (4)
  1. TAXOTERE [Suspect]
     Indication: PROSTATE CANCER
     Dosage: EVERY 3 WEEKS
     Route: 041
     Dates: start: 20091106, end: 20091106
  2. TAXOTERE [Suspect]
     Dosage: EVERY 3 WEEKS
     Route: 041
  3. BLINDED THERAPY [Suspect]
     Indication: PROSTATE CANCER
     Route: 048
     Dates: start: 20091106
  4. PREDNISONE [Suspect]
     Indication: PROSTATE CANCER
     Route: 048
     Dates: start: 20091106

REACTIONS (2)
  - PLEURAL EFFUSION [None]
  - PULMONARY HYPERTENSION [None]
